FAERS Safety Report 24631323 (Version 1)
Quarter: 2024Q4

REPORT INFORMATION
  Report Type: Report from Study
  Country: FR (occurrence: FR)
  Receive Date: 20241118
  Receipt Date: 20241118
  Transmission Date: 20250114
  Serious: Yes (Death)
  Sender: RECORDATI
  Company Number: FR-ORPHANEU-2024005615

PATIENT

DRUGS (29)
  1. OSILODROSTAT [Suspect]
     Active Substance: OSILODROSTAT
     Indication: Pituitary-dependent Cushing^s syndrome
     Dosage: 60 MG
     Dates: start: 20221222, end: 202212
  2. OSILODROSTAT [Suspect]
     Active Substance: OSILODROSTAT
     Dosage: 10 MILLIGRAM, 6 TIMES A DAY
     Dates: start: 20221226, end: 20230115
  3. PANTOPRAZOLE [Concomitant]
     Active Substance: PANTOPRAZOLE
     Indication: Gastrooesophageal reflux disease
     Dosage: 20 MG, PRN
     Route: 048
     Dates: start: 20230113, end: 20240710
  4. NEBIVOLOL [Concomitant]
     Active Substance: NEBIVOLOL
     Indication: Hypertension
     Dosage: 2.5 MG, QD
     Route: 048
     Dates: start: 20221206, end: 2023
  5. NEBIVOLOL [Concomitant]
     Active Substance: NEBIVOLOL
     Dosage: 5 MG, QD
     Route: 048
     Dates: start: 2023, end: 20240710
  6. HYDROCORTISONE [Concomitant]
     Active Substance: HYDROCORTISONE
     Indication: Secondary adrenocortical insufficiency
     Dosage: 100 MG, QD
     Route: 048
     Dates: start: 20230125, end: 20230125
  7. HYDROCORTISONE [Concomitant]
     Active Substance: HYDROCORTISONE
     Dosage: 10 MG, TID
     Route: 048
     Dates: start: 20230517, end: 20230817
  8. HYDROCORTISONE [Concomitant]
     Active Substance: HYDROCORTISONE
     Dosage: 30 MG, BID
     Route: 048
     Dates: start: 202310, end: 20240121
  9. HYDROCORTISONE [Concomitant]
     Active Substance: HYDROCORTISONE
     Dosage: 50 MG, PRN
     Route: 048
     Dates: start: 20240619, end: 20240702
  10. HYDROCORTISONE [Concomitant]
     Active Substance: HYDROCORTISONE
     Dosage: 50 MG, QID
     Route: 048
     Dates: start: 20240703, end: 202407
  11. BACTRIM [Concomitant]
     Active Substance: SULFAMETHOXAZOLE\TRIMETHOPRIM
     Indication: Respiratory tract infection
     Dosage: 800 MG, PRN
     Route: 048
     Dates: start: 20230113, end: 20240710
  12. ACETAMINOPHEN [Concomitant]
     Active Substance: ACETAMINOPHEN
     Indication: Pain
     Dosage: 1 GRAM, PRN
     Route: 048
     Dates: start: 202302, end: 20240710
  13. ACETAMINOPHEN [Concomitant]
     Active Substance: ACETAMINOPHEN
     Indication: Upper limb fracture
     Dosage: UNK
     Route: 048
     Dates: start: 20240504, end: 20240710
  14. ZOPICLONE [Concomitant]
     Active Substance: ZOPICLONE
     Indication: Sedative therapy
     Dosage: 3.75 MG, QD
     Route: 048
     Dates: start: 202310, end: 20240710
  15. FOLIC ACID [Concomitant]
     Active Substance: FOLIC ACID
     Indication: Vitamin B complex deficiency
     Dosage: 0.4 MG, TID
     Route: 048
     Dates: start: 20240131, end: 20240710
  16. POTASSIUM CHLORIDE [Concomitant]
     Active Substance: POTASSIUM CHLORIDE
     Indication: Hypokalaemia
     Dosage: 600 MG, BID
     Route: 048
     Dates: start: 20240131, end: 20240710
  17. LEVOTHYROXINE SODIUM [Concomitant]
     Active Substance: LEVOTHYROXINE SODIUM
     Indication: Hypothyroidism
     Dosage: 100 MICROGRAM, QD
     Route: 048
     Dates: start: 202310, end: 20240130
  18. LEVOTHYROXINE SODIUM [Concomitant]
     Active Substance: LEVOTHYROXINE SODIUM
     Dosage: 150 MICROGRAM, QD
     Route: 048
     Dates: start: 20240131, end: 20240710
  19. INSULIN GLARGINE [Concomitant]
     Active Substance: INSULIN GLARGINE
     Indication: Diabetes mellitus
     Dosage: 36 INTERNATIONAL UNIT, QD
     Route: 058
     Dates: start: 2022, end: 2023
  20. INSULIN GLARGINE [Concomitant]
     Active Substance: INSULIN GLARGINE
     Dosage: 22 INTERNATIONAL UNIT, QD
     Route: 058
     Dates: start: 2023, end: 20240130
  21. INSULIN GLARGINE [Concomitant]
     Active Substance: INSULIN GLARGINE
     Dosage: 16 INTERNATIONAL UNIT, QD
     Route: 058
     Dates: start: 20240131, end: 20240710
  22. CABOMETYX [Concomitant]
     Active Substance: CABOZANTINIB S-MALATE
     Indication: Lung neoplasm malignant
     Dosage: 60 MG, QD
     Route: 048
     Dates: start: 20231129, end: 20240627
  23. ECONAZOLE [Concomitant]
     Active Substance: ECONAZOLE
     Indication: Fungal infection
     Dosage: 1 PERCENT, PRN
     Route: 062
     Dates: start: 20240131, end: 20240710
  24. ALDACTONE [Concomitant]
     Active Substance: SPIRONOLACTONE
     Indication: Hypertension
     Dosage: 50 MG, QD
     Route: 048
     Dates: start: 20240131, end: 20240710
  25. Loxen [Concomitant]
     Indication: Hypertension
     Dosage: 50 MG, BID
     Route: 048
     Dates: start: 20240131, end: 20240710
  26. URAPIDIL [Concomitant]
     Active Substance: URAPIDIL
     Indication: Hypertension
     Dosage: 60 MG, TID
     Route: 048
     Dates: start: 20240131, end: 20240710
  27. SMECTA [Concomitant]
     Active Substance: MONTMORILLONITE
     Indication: Diarrhoea
     Dosage: UNK
     Dates: start: 20240301, end: 20240710
  28. IMODIUM [Concomitant]
     Active Substance: LOPERAMIDE HYDROCHLORIDE
     Indication: Diarrhoea
     Dosage: UNK
     Dates: start: 20240301, end: 20240710
  29. DESONIDE [Concomitant]
     Active Substance: DESONIDE
     Indication: Necrolytic migratory erythema
     Dosage: UNK
     Dates: start: 20240327, end: 20240710

REACTIONS (3)
  - General physical health deterioration [Fatal]
  - Hypovolaemic shock [Fatal]
  - Adrenal insufficiency [Fatal]

NARRATIVE: CASE EVENT DATE: 20240702
